FAERS Safety Report 17556580 (Version 3)
Quarter: 2020Q3

REPORT INFORMATION
  Report Type: Spontaneous
  Country: US (occurrence: US)
  Receive Date: 20200318
  Receipt Date: 20200929
  Transmission Date: 20201102
  Serious: Yes (Other)
  Sender: FDA-Public Use
  Company Number: US-PFIZER INC-2020116875

PATIENT
  Age: 76 Year
  Sex: Female
  Weight: 81 kg

DRUGS (1)
  1. LYRICA [Suspect]
     Active Substance: PREGABALIN
     Indication: BACK PAIN
     Dosage: 150 MG, 2X/DAY(ONE CAPSULE IN THE MORNING AND ONE IN THE EVENING MOUTH.)
     Route: 048

REACTIONS (6)
  - Product dose omission issue [Unknown]
  - Hot flush [Recovered/Resolved]
  - Illness [Recovered/Resolved]
  - Nausea [Unknown]
  - Arthropathy [Unknown]
  - Withdrawal syndrome [Recovered/Resolved]

NARRATIVE: CASE EVENT DATE: 202009
